FAERS Safety Report 5484806-6 (Version None)
Quarter: 2007Q4

REPORT INFORMATION
  Report Type: 
  Country: None (occurrence: None)
  Receive Date: 20071012
  Receipt Date: 20071002
  Transmission Date: 20080405
  Serious: Yes (Other)
  Sender: FDA-Public Use
  Company Number: PT-PFIZER INC-2007082667

PATIENT
  Age: 36 Year
  Sex: Female

DRUGS (5)
  1. VFEND [Suspect]
     Indication: BRONCHOPULMONARY ASPERGILLOSIS
     Route: 048
  2. TACROLIMUS [Concomitant]
  3. PREDNISOLONE [Concomitant]
  4. GANCICLOVIR [Concomitant]
  5. ANTIDEPRESSANTS [Concomitant]

REACTIONS (1)
  - PSEUDOPORPHYRIA [None]
